FAERS Safety Report 24216987 (Version 1)
Quarter: 2024Q3

REPORT INFORMATION
  Report Type: Spontaneous
  Country: GB (occurrence: GB)
  Receive Date: 20240816
  Receipt Date: 20240816
  Transmission Date: 20241017
  Serious: Yes (Other)
  Sender: TEVA
  Company Number: None

PATIENT
  Sex: Female
  Weight: 102 kg

DRUGS (3)
  1. OMEPRAZOLE [Suspect]
     Active Substance: OMEPRAZOLE
     Indication: Hiatus hernia
     Dosage: UNK
     Route: 065
  2. LANSOPRAZOLE [Suspect]
     Active Substance: LANSOPRAZOLE
     Indication: Hiatus hernia
     Dosage: UNK
     Route: 065
     Dates: start: 1992
  3. RANITIDINE [Suspect]
     Active Substance: RANITIDINE
     Indication: Hiatus hernia
     Dosage: UNK
     Route: 065

REACTIONS (14)
  - Illness [Not Recovered/Not Resolved]
  - Bone pain [Unknown]
  - Multiple allergies [Unknown]
  - Allergy to metals [Unknown]
  - Rash [Unknown]
  - Off label use [Unknown]
  - Arthralgia [Unknown]
  - Allergy to plants [Unknown]
  - Diarrhoea [Unknown]
  - Pruritus [Unknown]
  - Incorrect product administration duration [Unknown]
  - Food allergy [Unknown]
  - Malaise [Unknown]
  - Drug hypersensitivity [Unknown]

NARRATIVE: CASE EVENT DATE: 19920101
